FAERS Safety Report 7821077-7 (Version None)
Quarter: 2011Q4

REPORT INFORMATION
  Report Type: 
  Country: None (occurrence: None)
  Receive Date: 20111018
  Receipt Date: 20111013
  Transmission Date: 20120403
  Serious: No
  Sender: FDA-Public Use
  Company Number: US-PFIZER INC-2011247003

PATIENT
  Sex: Female
  Weight: 113 kg

DRUGS (7)
  1. SYNTHROID [Concomitant]
     Indication: HYPOTHYROIDISM
     Dosage: 0.15 MG, DAILY
  2. FLEXERIL [Concomitant]
     Indication: PAIN
  3. SAVELLA [Suspect]
     Indication: FIBROMYALGIA
     Dosage: 25 MG, DAILY
     Dates: start: 20110101, end: 20110101
  4. FLEXERIL [Concomitant]
     Indication: MUSCULOSKELETAL STIFFNESS
     Dosage: UNK, AS NEEDED
  5. LYRICA [Suspect]
     Indication: FIBROMYALGIA
     Dosage: 100 MG, 3X/DAY
     Route: 048
     Dates: start: 20110101
  6. SAVELLA [Suspect]
     Dosage: 25 MG, DAILY
     Dates: start: 20111001, end: 20111001
  7. IBUPROFEN [Concomitant]
     Indication: PAIN
     Dosage: UNK, DAILY

REACTIONS (5)
  - MUSCULOSKELETAL STIFFNESS [None]
  - MUSCLE RIGIDITY [None]
  - JOINT STIFFNESS [None]
  - PAIN [None]
  - FIBROMYALGIA [None]
